FAERS Safety Report 9705976 (Version 2)
Quarter: 2013Q4

REPORT INFORMATION
  Report Type: Report from Study
  Country: JP (occurrence: JP)
  Receive Date: 20131122
  Receipt Date: 20131205
  Transmission Date: 20140711
  Serious: Yes (Hospitalization)
  Sender: FDA-Public Use
  Company Number: JP-GLAXOSMITHKLINE-B0947206A

PATIENT
  Age: 80 Year
  Sex: Female
  Weight: 43 kg

DRUGS (12)
  1. ALKERAN [Suspect]
     Indication: PLASMA CELL MYELOMA
     Dosage: 8MG PER DAY
     Route: 048
     Dates: start: 20130806, end: 20130906
  2. THALIDOMIDE [Suspect]
     Indication: PLASMA CELL MYELOMA
     Dosage: 100MG PER DAY
     Route: 048
     Dates: start: 20130806, end: 20130906
  3. PREDNISOLONE [Suspect]
     Indication: PLASMA CELL MYELOMA
     Dosage: 50MG PER DAY
     Route: 048
     Dates: start: 20130806, end: 20130906
  4. CLARITHROMYCIN [Concomitant]
     Indication: ATYPICAL MYCOBACTERIAL INFECTION
     Dosage: 200MG PER DAY
     Route: 048
     Dates: start: 201209, end: 20130908
  5. CARBOCISTEINE [Concomitant]
     Indication: ATYPICAL MYCOBACTERIAL INFECTION
     Dosage: 500MG THREE TIMES PER DAY
     Route: 048
     Dates: start: 201209, end: 20130908
  6. EDIROL [Concomitant]
     Indication: ATYPICAL MYCOBACTERIAL INFECTION
     Dosage: .75MCG PER DAY
     Route: 048
     Dates: start: 2012, end: 20130908
  7. POLYFUL [Concomitant]
     Indication: IRRITABLE BOWEL SYNDROME
     Dosage: 500MG THREE TIMES PER DAY
     Route: 048
     Dates: start: 2012, end: 20130908
  8. ADOAIR [Concomitant]
     Indication: ATYPICAL MYCOBACTERIAL INFECTION
     Dosage: 250MG TWICE PER DAY
     Route: 055
     Dates: start: 201209, end: 20130908
  9. SULTANOL [Concomitant]
     Indication: ATYPICAL MYCOBACTERIAL INFECTION
     Route: 055
     Dates: start: 201209, end: 20130908
  10. HYALEIN [Concomitant]
     Indication: DRY EYE
     Route: 031
     Dates: start: 2013
  11. BUFFERIN [Concomitant]
     Indication: PROPHYLAXIS
     Dosage: 81MG PER DAY
     Route: 048
     Dates: start: 20130806, end: 20130908
  12. NEXIUM [Concomitant]
     Indication: GASTRITIS PROPHYLAXIS
     Dosage: 20MG PER DAY
     Route: 048
     Dates: start: 20130806, end: 20130908

REACTIONS (1)
  - Pneumonia [Recovering/Resolving]
